FAERS Safety Report 8312769-4 (Version None)
Quarter: 2012Q2

REPORT INFORMATION
  Report Type: 
  Country: None (occurrence: None)
  Receive Date: 20120426
  Receipt Date: 20120420
  Transmission Date: 20120825
  Serious: No
  Sender: FDA-Public Use
  Company Number: US-PFIZER INC-2012100204

PATIENT
  Sex: Female

DRUGS (2)
  1. NEURONTIN [Suspect]
     Indication: HERPES ZOSTER
     Dosage: 100 MG/DAY AT DAY TIME
  2. NEURONTIN [Suspect]
     Indication: DIABETIC NEUROPATHY
     Dosage: 300 MG, AT NIGHT TIME

REACTIONS (3)
  - PAIN [None]
  - DRUG INEFFECTIVE [None]
  - SOMNOLENCE [None]
